FAERS Safety Report 7558836-4 (Version None)
Quarter: 2011Q2

REPORT INFORMATION
  Report Type: 
  Country: None (occurrence: None)
  Receive Date: 20110613
  Receipt Date: 20110527
  Transmission Date: 20111010
  Serious: Yes (Other)
  Sender: FDA-Public Use
  Company Number: 2011NA000047

PATIENT
  Age: 47 Year
  Sex: Female

DRUGS (4)
  1. CYCLOSPORINE [Concomitant]
  2. METHOTREXATE [Concomitant]
  3. DICLOFENAC SODIUM [Suspect]
     Indication: ARTHRALGIA
     Dosage: 75 MG; BID;
  4. CORTICOSTEROIDS [Concomitant]

REACTIONS (7)
  - ANAEMIA MACROCYTIC [None]
  - COLONOSCOPY ABNORMAL [None]
  - WEIGHT DECREASED [None]
  - OCCULT BLOOD POSITIVE [None]
  - COLITIS ULCERATIVE [None]
  - GASTROINTESTINAL DISORDER [None]
  - COLITIS [None]
